FAERS Safety Report 6640685-2 (Version None)
Quarter: 2010Q1

REPORT INFORMATION
  Report Type: 
  Country: None (occurrence: None)
  Receive Date: 20100318
  Receipt Date: 20100315
  Transmission Date: 20100710
  Serious: Yes (Life-Threatening, Other)
  Sender: FDA-Public Use
  Company Number: BE-ASTRAZENECA-2010SE11223

PATIENT
  Age: 47 Year
  Sex: Female

DRUGS (6)
  1. QUETIAPINE [Suspect]
     Route: 048
  2. QUETIAPINE [Interacting]
     Route: 048
  3. LAMIVUDINE [Interacting]
     Indication: HIV INFECTION
  4. RITONAVIR [Interacting]
     Indication: HIV INFECTION
  5. ATAZANAVIR [Interacting]
     Indication: HIV INFECTION
  6. TENOFOVIR [Interacting]
     Indication: HIV INFECTION

REACTIONS (4)
  - COMA [None]
  - DRUG INTERACTION [None]
  - HYPOTENSION [None]
  - OVERDOSE [None]
